FAERS Safety Report 25248031 (Version 1)
Quarter: 2025Q2

REPORT INFORMATION
  Report Type: Report from Study
  Country: US (occurrence: US)
  Receive Date: 20250429
  Receipt Date: 20250429
  Transmission Date: 20250716
  Serious: Yes (Other)
  Sender: RANBAXY
  Company Number: US-MIMS-SUN-2025-USA-53493

PATIENT
  Age: 43 Year
  Sex: Male

DRUGS (2)
  1. ISOTRETINOIN [Suspect]
     Active Substance: ISOTRETINOIN
     Indication: Product used for unknown indication
     Route: 065
     Dates: start: 20241023, end: 20250323
  2. ISOTRETINOIN [Suspect]
     Active Substance: ISOTRETINOIN
     Route: 065

REACTIONS (2)
  - Abnormal dreams [Unknown]
  - Suicidal ideation [Unknown]

NARRATIVE: CASE EVENT DATE: 20250316
